FAERS Safety Report 6648316-2 (Version None)
Quarter: 2010Q1

REPORT INFORMATION
  Report Type: 
  Country: None (occurrence: None)
  Receive Date: 20100324
  Receipt Date: 20100315
  Transmission Date: 20100710
  Serious: Yes (Life-Threatening, Other)
  Sender: FDA-Public Use
  Company Number: FR-ABBOTT-10P-056-0632203-00

PATIENT
  Sex: Female

DRUGS (14)
  1. KALETRA [Suspect]
     Indication: HIV INFECTION
     Dosage: 200 MG / 50 MG
     Route: 048
     Dates: start: 20100105, end: 20100126
  2. VALGANCICLOVIR HCL [Concomitant]
     Indication: DRUG USE FOR UNKNOWN INDICATION
     Dates: start: 20091222
  3. ATOVAQUONE [Concomitant]
     Indication: DRUG USE FOR UNKNOWN INDICATION
     Dates: start: 20091222
  4. ZYVOXID [Concomitant]
     Indication: DRUG USE FOR UNKNOWN INDICATION
     Dates: start: 20100101, end: 20100110
  5. PARACETAMOL [Concomitant]
     Indication: DRUG USE FOR UNKNOWN INDICATION
     Dates: start: 20091229, end: 20100205
  6. PARACETAMOL [Concomitant]
     Dates: start: 20100108, end: 20100118
  7. METOCLOPRAMIDE [Concomitant]
     Indication: DRUG USE FOR UNKNOWN INDICATION
     Dates: start: 20091223, end: 20100205
  8. SMECTA [Concomitant]
     Indication: DRUG USE FOR UNKNOWN INDICATION
     Dates: start: 20100105, end: 20100112
  9. POTASSIUM [Concomitant]
     Indication: DRUG USE FOR UNKNOWN INDICATION
     Dates: start: 20100105, end: 20100112
  10. HYDROXYZINE [Concomitant]
     Indication: DRUG USE FOR UNKNOWN INDICATION
     Dates: start: 20091231, end: 20100205
  11. LEVOCETIRIZINE DIHYDROCHLORIDE [Concomitant]
     Indication: DRUG USE FOR UNKNOWN INDICATION
     Dates: start: 20100114, end: 20100121
  12. ZOPICLONE [Concomitant]
     Indication: DRUG USE FOR UNKNOWN INDICATION
     Dates: start: 20100106, end: 20100201
  13. ZOLPIDEM [Concomitant]
     Indication: DRUG USE FOR UNKNOWN INDICATION
     Dates: start: 20100104
  14. TRUVADA [Concomitant]
     Indication: HIV INFECTION
     Dates: start: 20100105

REACTIONS (5)
  - CYTOLYTIC HEPATITIS [None]
  - HEPATITIS [None]
  - HEPATITIS ACUTE [None]
  - HEPATOCELLULAR INJURY [None]
  - LIVER DISORDER [None]
